FAERS Safety Report 5790576-4 (Version None)
Quarter: 2008Q2

REPORT INFORMATION
  Report Type: 
  Country: None (occurrence: None)
  Receive Date: 20080626
  Receipt Date: 20080501
  Transmission Date: 20081010
  Serious: No
  Sender: FDA-Public Use
  Company Number: A0725780A

PATIENT
  Age: 63 Year
  Sex: Female

DRUGS (2)
  1. ALLI [Suspect]
     Dates: end: 20080428
  2. ROLAIDS [Concomitant]

REACTIONS (6)
  - ABDOMINAL DISTENSION [None]
  - CONSTIPATION [None]
  - DRUG INEFFECTIVE [None]
  - ERUCTATION [None]
  - FLATULENCE [None]
  - RECTAL DISCHARGE [None]
